FAERS Safety Report 10501715 (Version 1)
Quarter: 2014Q4

REPORT INFORMATION
  Report Type: Spontaneous
  Country: US (occurrence: None)
  Receive Date: 20141006
  Receipt Date: 20141006
  Transmission Date: 20150528
  Serious: Yes (Other)
  Sender: FDA-Public Use
  Company Number: None

PATIENT
  Age: 70 Year
  Sex: Female
  Weight: 57.15 kg

DRUGS (9)
  1. LOSARTAN/HCT [Concomitant]
     Active Substance: HYDROCHLOROTHIAZIDE\LOSARTAN POTASSIUM
  2. TOPROL XL [Concomitant]
     Active Substance: METOPROLOL SUCCINATE
  3. NASONEX [Concomitant]
     Active Substance: MOMETASONE FUROATE
  4. ASPIRIN. [Concomitant]
     Active Substance: ASPIRIN
  5. MVI [Concomitant]
     Active Substance: VITAMINS
  6. METFORMIN [Concomitant]
     Active Substance: METFORMIN HYDROCHLORIDE
  7. VICTOZA [Suspect]
     Active Substance: LIRAGLUTIDE
     Indication: THERAPY CHANGE
     Dosage: 1.2 MG QD SUBCUTANEOUS
     Route: 058
     Dates: start: 20111101, end: 20140228
  8. CALCIUM [Concomitant]
     Active Substance: CALCIUM
  9. MAXALT [Concomitant]
     Active Substance: RIZATRIPTAN BENZOATE

REACTIONS (5)
  - Failure to thrive [None]
  - Blood bilirubin increased [None]
  - Transaminases increased [None]
  - Chromaturia [None]
  - Malaise [None]

NARRATIVE: CASE EVENT DATE: 20140227
